FAERS Safety Report 9521769 (Version 1)
Quarter: 2013Q3

REPORT INFORMATION
  Report Type: Spontaneous
  Country: US (occurrence: US)
  Receive Date: 20130913
  Receipt Date: 20130913
  Transmission Date: 20140515
  Serious: Yes (Death, Hospitalization, Other)
  Sender: FDA-Public Use
  Company Number: PHHY2013US099530

PATIENT
  Age: 73 Year
  Sex: Male

DRUGS (2)
  1. CICLOSPORIN [Suspect]
  2. MYCOPHENOLATE MOFETIL [Suspect]

REACTIONS (9)
  - West Nile viral infection [Fatal]
  - Confusional state [Fatal]
  - Mental disorder [Fatal]
  - Hyporeflexia [Fatal]
  - Cerebral infarction [Unknown]
  - Quadriplegia [Unknown]
  - Coma [Unknown]
  - Hyponatraemia [Unknown]
  - Immunosuppressant drug level increased [Unknown]
